FAERS Safety Report 6338895-7 (Version None)
Quarter: 2009Q3

REPORT INFORMATION
  Report Type: 
  Country: None (occurrence: None)
  Receive Date: 20090903
  Receipt Date: 20090827
  Transmission Date: 20100115
  Serious: Yes (Hospitalization, Other)
  Sender: FDA-Public Use
  Company Number: US-AMGEN-QUU362176

PATIENT
  Age: 75 Year
  Sex: Female

DRUGS (7)
  1. EPOGEN [Suspect]
     Indication: ANAEMIA
     Route: 058
     Dates: start: 20090801
  2. SYNTHROID [Concomitant]
  3. VERAPAMIL [Concomitant]
  4. MOBIC [Concomitant]
  5. IRON [Concomitant]
  6. PRILOSEC [Concomitant]
  7. ANTIBIOTICS [Concomitant]

REACTIONS (1)
  - GASTROINTESTINAL HAEMORRHAGE [None]
